FAERS Safety Report 4782263-6 (Version None)
Quarter: 2005Q3

REPORT INFORMATION
  Report Type: 
  Country: None (occurrence: None)
  Receive Date: 20050927
  Receipt Date: 20050919
  Transmission Date: 20060218
  Serious: Yes (Other)
  Sender: FDA-Public Use
  Company Number: 200512415BCC

PATIENT
  Age: 68 Year
  Sex: Female
  Weight: 74.8435 kg

DRUGS (5)
  1. ALEVE [Suspect]
     Indication: ANALGESIC EFFECT
     Dosage: 440 MG, TOTAL DAILY, ORAL
     Route: 048
     Dates: start: 20050517, end: 50050518
  2. METFORMIN [Concomitant]
  3. TAMOXIFEN CITRATE [Concomitant]
  4. ENALAPRIL [Concomitant]
  5. PREVACID [Concomitant]

REACTIONS (3)
  - HEPATIC ATROPHY [None]
  - HEPATIC FUNCTION ABNORMAL [None]
  - LIVER DISORDER [None]
